FAERS Safety Report 17116989 (Version 1)
Quarter: 2019Q4

REPORT INFORMATION
  Report Type: Report from Study
  Country: BE (occurrence: BE)
  Receive Date: 20191205
  Receipt Date: 20191205
  Transmission Date: 20200122
  Serious: Yes (Other)
  Sender: FDA-Public Use
  Company Number: PHHY2016BE088367

PATIENT
  Age: 46 Year
  Sex: Male

DRUGS (4)
  1. SATIVEX [Suspect]
     Active Substance: NABIXIMOLS
     Indication: PRODUCT USED FOR UNKNOWN INDICATION
     Dosage: UNK
     Route: 065
  2. CIALIS [Concomitant]
     Active Substance: TADALAFIL
     Indication: ERECTILE DYSFUNCTION
     Dosage: UNK
     Route: 065
     Dates: start: 20160623, end: 20170105
  3. SOLU-MEDROL [Suspect]
     Active Substance: METHYLPREDNISOLONE SODIUM SUCCINATE
     Indication: PRODUCT USED FOR UNKNOWN INDICATION
     Dosage: UNK
     Route: 065
  4. GILENYA [Suspect]
     Active Substance: FINGOLIMOD HYDROCHLORIDE
     Indication: MULTIPLE SCLEROSIS
     Dosage: UNK UNK, QD
     Route: 048
     Dates: start: 20140522, end: 20150501

REACTIONS (14)
  - JC polyomavirus test positive [Not Recovered/Not Resolved]
  - Haematocrit decreased [Unknown]
  - Peripheral venous disease [Unknown]
  - Bone contusion [Unknown]
  - Nervousness [Unknown]
  - Gamma-glutamyltransferase increased [Unknown]
  - Alanine aminotransferase increased [Unknown]
  - Normocytic anaemia [Recovered/Resolved]
  - Constipation [Unknown]
  - Muscular weakness [Unknown]
  - Dyslipidaemia [Unknown]
  - Influenza [Unknown]
  - Hypercholesterolaemia [Unknown]
  - Fall [Unknown]

NARRATIVE: CASE EVENT DATE: 20140522
